FAERS Safety Report 19873624 (Version 1)
Quarter: 2021Q3

REPORT INFORMATION
  Report Type: Spontaneous
  Country: US (occurrence: US)
  Receive Date: 20210922
  Receipt Date: 20210922
  Transmission Date: 20211014
  Serious: Yes (Other)
  Sender: FDA-Public Use
  Company Number: US-GILEAD-2021-0548724

PATIENT
  Sex: Male

DRUGS (6)
  1. SOFOSBUVIR;VELPATASVIR [Suspect]
     Active Substance: SOFOSBUVIR\VELPATASVIR
     Indication: CHRONIC HEPATITIS C
     Dosage: 1 DOSAGE FORM, QD
     Route: 048
  2. VITAMINS NOS [Concomitant]
     Active Substance: VITAMINS
  3. SILDENAFIL. [Concomitant]
     Active Substance: SILDENAFIL
  4. DANDELION [Concomitant]
     Active Substance: TARAXACUM OFFICINALE POLLEN
  5. RIBAVIRIN. [Suspect]
     Active Substance: RIBAVIRIN
     Indication: PRODUCT USED FOR UNKNOWN INDICATION
     Route: 065
  6. PANTOPRAZOLE SODIUM. [Concomitant]
     Active Substance: PANTOPRAZOLE SODIUM

REACTIONS (2)
  - Drug ineffective [Unknown]
  - Unevaluable event [Unknown]
